FAERS Safety Report 7448356-X (Version None)
Quarter: 2011Q2

REPORT INFORMATION
  Report Type: 
  Country: None (occurrence: None)
  Receive Date: 20110429
  Receipt Date: 20100514
  Transmission Date: 20111010
  Serious: No
  Sender: FDA-Public Use
  Company Number: US-ASTRAZENECA-2010SE22147

PATIENT
  Age: 10 Year
  Sex: Male
  Weight: 49 kg

DRUGS (3)
  1. NEXIUM [Suspect]
     Indication: GASTROOESOPHAGEAL REFLUX DISEASE
     Route: 048
     Dates: start: 20060101
  2. MULTI-VITAMINS [Concomitant]
  3. ZYRTEC [Concomitant]

REACTIONS (2)
  - HAND FRACTURE [None]
  - EPIPHYSEAL FRACTURE [None]
